FAERS Safety Report 23652772 (Version 1)
Quarter: 2024Q1

REPORT INFORMATION
  Report Type: Spontaneous
  Country: US (occurrence: US)
  Receive Date: 20240320
  Receipt Date: 20240320
  Transmission Date: 20240410
  Serious: No
  Sender: FDA-Public Use
  Company Number: US-AUROBINDO-AUR-APL-2023-034505

PATIENT
  Sex: Female

DRUGS (1)
  1. GABAPENTIN [Suspect]
     Active Substance: GABAPENTIN
     Indication: Sleep disorder
     Dosage: 3 DOSAGE FORM, AT BED TIME (TAKE UP TO 4 CAPSULES AT NIGHT FOR SLEEP. T)
     Route: 048
     Dates: start: 20230426

REACTIONS (1)
  - Drug ineffective for unapproved indication [Unknown]
